FAERS Safety Report 4681938-7 (Version None)
Quarter: 2005Q2

REPORT INFORMATION
  Report Type: 
  Country: None (occurrence: None)
  Receive Date: 20050602
  Receipt Date: 20050523
  Transmission Date: 20051028
  Serious: Yes (Hospitalization)
  Sender: FDA-Public Use
  Company Number: 2005078139

PATIENT
  Sex: Male

DRUGS (18)
  1. FLAGYL [Suspect]
     Indication: OPEN WOUND
     Dosage: 500 MG (500 MG, DAILY INTERVAL: DAILY), ORAL
     Route: 048
     Dates: start: 20050216, end: 20050226
  2. CIPROFLOXACIN [Suspect]
     Indication: OPEN WOUND
     Dosage: 500 MG (500 MG, DAILY INTERVAL: DAILY), ORAL
     Route: 048
     Dates: start: 20050216, end: 20050217
  3. CIPROFLOXACIN [Suspect]
     Indication: OPEN WOUND
     Dosage: 500 MG (500 MG, DAILY INTERVAL: DAILY), ORAL
     Route: 048
     Dates: start: 20050218, end: 20050226
  4. LASIX [Suspect]
     Indication: HYPERTENSION
     Dosage: 20 MG (40 MG, DAILY INTERVAL: DAILY), ORAL
     Route: 048
     Dates: end: 20050228
  5. PANTOPRAZOLE SODIUM [Suspect]
     Indication: ILL-DEFINED DISORDER
     Dosage: 40 MG (40 MG, DAILY INTERVAL: DAILY), ORAL
     Route: 048
     Dates: end: 20050228
  6. DAFALGAN, PARACETAMOL (PARACETAMOL) [Suspect]
     Indication: ILL-DEFINED DISORDER
     Dosage: QID INTERVAL: DAILY, ORAL
     Route: 048
     Dates: start: 20050216, end: 20050228
  7. DIPIPERON (PIPAMPERONE) [Suspect]
     Indication: ILL-DEFINED DISORDER
     Dosage: ORAL
     Route: 048
     Dates: start: 20050221, end: 20050228
  8. XYZAL (LEVOCETIRIZINE DIHYDROCHLORIDE) [Suspect]
     Indication: ILL-DEFINED DISORDER
     Dosage: ORAL
     Route: 048
     Dates: start: 20050218, end: 20050228
  9. FENISTIL (DIMETINDENE MALEATE) [Suspect]
     Indication: ILL-DEFINED DISORDER
     Dosage: ORAL
     Route: 048
     Dates: start: 20050221, end: 20050228
  10. METOCLOPRAMIDE [Suspect]
     Indication: ILL-DEFINED DISORDER
     Dosage: ORAL
     Route: 048
     Dates: start: 20050221, end: 20050228
  11. TRAMADOL HCL [Suspect]
     Indication: ILL-DEFINED DISORDER
     Dosage: ORAL
     Route: 048
     Dates: start: 20050217, end: 20050223
  12. FRAXIPARINE (HEPARIN-FRACTION, CALCIUM SALT) [Suspect]
     Indication: ILL-DEFINED DISORDER
     Dosage: SUBCUTANEOUS
     Route: 058
     Dates: end: 20050221
  13. AVANDIA [Suspect]
     Indication: ILL-DEFINED DISORDER
     Dosage: ORAL
     Route: 048
  14. LEVOTHYROXINE SODIUM [Concomitant]
  15. MAGNESIOCARD (MAGNESIUM ASPARTATE HYDROCHLORIDE) [Concomitant]
  16. TOREM (TORASEMIDE) [Concomitant]
  17. NOCTAMID (LORMETAZEPAM) [Concomitant]
  18. GLUCOPHAGE [Concomitant]

REACTIONS (1)
  - JAUNDICE CHOLESTATIC [None]
